FAERS Safety Report 9928294 (Version 6)
Quarter: 2015Q2

REPORT INFORMATION
  Report Type: Report from Study
  Country: DE (occurrence: DE)
  Receive Date: 20140227
  Receipt Date: 20150626
  Transmission Date: 20150821
  Serious: Yes (Hospitalization)
  Sender: FDA-Public Use
  Company Number: DE-UCBSA-113479

PATIENT
  Sex: Female
  Weight: 72 kg

DRUGS (35)
  1. PREDNISOLONE. [Concomitant]
     Active Substance: PREDNISOLONE
     Dosage: 12.5 MG, ONCE DAILY (QD)
     Dates: start: 20131017, end: 20131021
  2. PREDNISOLONE. [Concomitant]
     Active Substance: PREDNISOLONE
     Dosage: 10 MG, ONCE DAILY (QD)
     Dates: start: 20131022, end: 20131028
  3. FOLIC ACID. [Concomitant]
     Active Substance: FOLIC ACID
     Indication: PROPHYLAXIS
     Dosage: SUFFICIENT QUANTITY. 1 X WEEK MONDAYS
     Dates: start: 20131026
  4. PROTAPHANE [Concomitant]
     Active Substance: INSULIN HUMAN
     Indication: TYPE 1 DIABETES MELLITUS
     Dosage: UNK UNK, AS NEEDED (PRN)
     Dates: start: 2008
  5. MARCUMAR [Concomitant]
     Active Substance: PHENPROCOUMON
     Indication: ATRIAL FIBRILLATION
  6. PREDNISOLONE. [Concomitant]
     Active Substance: PREDNISOLONE
     Dosage: 15 MG, ONCE DAILY (QD)
     Dates: start: 20120221, end: 20120225
  7. PREDNISOLONE. [Concomitant]
     Active Substance: PREDNISOLONE
     Dosage: 12.5 MG, ONCE DAILY (QD)
     Dates: start: 20120226, end: 20120314
  8. PREDNISOLONE. [Concomitant]
     Active Substance: PREDNISOLONE
     Dosage: 2.5 MG, ONCE DAILY (QD)
     Dates: start: 20130413, end: 20131010
  9. PANTOPRAZOLE SODIUM. [Concomitant]
     Active Substance: PANTOPRAZOLE SODIUM
     Indication: PROPHYLAXIS
     Dosage: 40 MG, ONCE DAILY (QD)
     Dates: start: 201109
  10. TRAMAL LONG [Concomitant]
     Active Substance: TRAMADOL
     Indication: RHEUMATOID ARTHRITIS
     Dosage: 100 MG, 2X/DAY (BID)
     Dates: start: 20120117
  11. AQUAPHOR [Concomitant]
     Active Substance: PETROLATUM
     Indication: HYPERTENSION
     Dosage: 10 MG, ONCE DAILY (QD)
     Dates: end: 201312
  12. AQUAPHOR [Concomitant]
     Active Substance: PETROLATUM
     Dosage: 10 MG, ONCE DAILY (QD)
     Dates: start: 20140114
  13. PREDNISOLONE. [Concomitant]
     Active Substance: PREDNISOLONE
     Dosage: 20 MG, ONCE DAILY (QD)
     Dates: start: 20131011, end: 20131011
  14. PREDNISOLONE. [Concomitant]
     Active Substance: PREDNISOLONE
     Dosage: 15 MG, ONCE DAILY (QD)
     Dates: start: 20131012, end: 20131016
  15. PREDNISOLONE. [Concomitant]
     Active Substance: PREDNISOLONE
     Dosage: 5 MG, ONCE DAILY (QD)
     Dates: start: 20131208, end: 20140114
  16. MTX [Concomitant]
     Active Substance: METHOTREXATE SODIUM
     Indication: RHEUMATOID ARTHRITIS
     Dosage: SUFFICIENT QUANTITY.(7.5 MG 1X WEEK SUNDAYS)
     Dates: start: 20131025
  17. METOHEXAL [Concomitant]
     Active Substance: METOPROLOL SUCCINATE
     Indication: HYPERTENSION
  18. PREDNISOLONE. [Concomitant]
     Active Substance: PREDNISOLONE
     Dosage: 20 MG, ONCE DAILY (QD)
     Dates: start: 20120217, end: 20120220
  19. PREDNISOLONE. [Concomitant]
     Active Substance: PREDNISOLONE
     Dosage: 7.5 MG, ONCE DAILY (QD)
     Dates: start: 20131029, end: 20131205
  20. TRAMAL LONG [Concomitant]
     Active Substance: TRAMADOL
     Indication: POLYARTHRITIS
     Dosage: 50 MG, 2X/DAY (BID)
     Dates: start: 20120109, end: 20120116
  21. MARCUMAR [Concomitant]
     Active Substance: PHENPROCOUMON
     Indication: ATRIAL FIBRILLATION
     Dosage: 3 MG . ACCORDING INR
     Dates: start: 200603
  22. PREDNISOLONE. [Concomitant]
     Active Substance: PREDNISOLONE
     Indication: POLYARTHRITIS
     Dosage: 10 MG, ONCE DAILY (QD)
     Dates: start: 20110929, end: 20120216
  23. PREDNISOLONE. [Concomitant]
     Active Substance: PREDNISOLONE
     Dosage: 2.5 MG, ONCE DAILY (QD)
     Dates: start: 20140115
  24. NOVORAPID [Concomitant]
     Active Substance: INSULIN ASPART
     Indication: TYPE 1 DIABETES MELLITUS
     Dosage: UNK UNK, AS NEEDED (PRN)
     Dates: start: 2008
  25. PREDNISOLONE. [Concomitant]
     Active Substance: PREDNISOLONE
     Indication: RHEUMATOID ARTHRITIS
     Dosage: 5 MG, ONCE DAILY (QD)
     Dates: start: 20120314, end: 20130412
  26. LEFLUNOMID [Concomitant]
     Active Substance: LEFLUNOMIDE
  27. CERTOLIZUMAB PEGOL RA [Suspect]
     Active Substance: CERTOLIZUMAB PEGOL
     Indication: RHEUMATOID ARTHRITIS
     Dosage: 200 MG, EV 2 WEEKS(QOW)
     Route: 058
     Dates: start: 20120116
  28. PREDNISOLONE. [Concomitant]
     Active Substance: PREDNISOLONE
     Dosage: 10 MG, ONCE DAILY (QD)
     Dates: start: 20120315, end: 20120402
  29. METOHEXAL [Concomitant]
     Active Substance: METOPROLOL SUCCINATE
     Dosage: 47.5 MG, 3X/DAY (TID)
     Dates: end: 201312
  30. ALLOPURINOL. [Concomitant]
     Active Substance: ALLOPURINOL
     Indication: RENAL FAILURE
     Dosage: 300 MG, ONCE DAILY (QD)
  31. CALCIVIT D [Concomitant]
     Indication: PROPHYLAXIS
     Dosage: 1500 MG, ONCE DAILY (QD)
     Dates: start: 200110
  32. TORSEMIDE. [Concomitant]
     Active Substance: TORSEMIDE
     Indication: LYMPHOEDEMA
     Dosage: 10 MG, ONCE DAILY (QD)
     Dates: start: 2006, end: 201312
  33. PREDNISOLONE. [Concomitant]
     Active Substance: PREDNISOLONE
     Dosage: 20 MG, ONCE DAILY (QD)
     Dates: start: 20131206, end: 20131207
  34. METOHEXAL [Concomitant]
     Active Substance: METOPROLOL SUCCINATE
     Dosage: 95 MG, ONCE DAILY (QD)
     Dates: start: 201312
  35. SPIRONOLACTON [Concomitant]
     Active Substance: SPIRONOLACTONE
     Indication: LYMPHOEDEMA
     Dosage: 50 MG, ONCE DAILY (QD)
     Dates: start: 2006, end: 201312

REACTIONS (1)
  - Urinary tract infection [Recovered/Resolved]

NARRATIVE: CASE EVENT DATE: 20131205
